FAERS Safety Report 14138818 (Version 2)
Quarter: 2017Q4

REPORT INFORMATION
  Report Type: Report from Study
  Country: DE (occurrence: DE)
  Receive Date: 20171027
  Receipt Date: 20171109
  Transmission Date: 20180321
  Serious: Yes (Death, Hospitalization, Other)
  Sender: FDA-Public Use
  Company Number: PHHY2017DE121407

PATIENT
  Age: 56 Year
  Sex: Female
  Weight: 77 kg

DRUGS (10)
  1. ERIBULIN [Concomitant]
     Active Substance: ERIBULIN
     Indication: PRODUCT USED FOR UNKNOWN INDICATION
     Dosage: 2.5 MG, (6 TIMES)
     Route: 042
     Dates: start: 20170223, end: 20170511
  2. PALBOCICLIB [Concomitant]
     Active Substance: PALBOCICLIB
     Indication: PRODUCT USED FOR UNKNOWN INDICATION
     Dosage: 125 OT, UNK (21 DAYS THEN 1 WEEK PAUSE)
     Route: 065
     Dates: start: 20170530, end: 20170725
  3. METFORMIN [Concomitant]
     Active Substance: METFORMIN HYDROCHLORIDE
     Indication: TYPE 2 DIABETES MELLITUS
     Dosage: 1000 OT, BID (1-0-1)
     Route: 048
  4. EXJADE [Suspect]
     Active Substance: DEFERASIROX
     Dosage: UNK
     Route: 065
     Dates: start: 20170804, end: 20171001
  5. EXJADE [Suspect]
     Active Substance: DEFERASIROX
     Indication: IRON OVERLOAD
     Dosage: 9.3 MG/KG, UNK
     Route: 065
     Dates: start: 20170227, end: 20170316
  6. EXJADE [Suspect]
     Active Substance: DEFERASIROX
     Dosage: 18.5 MG/KG, UNK
     Route: 065
     Dates: start: 20170317, end: 20170803
  7. EXJADE [Suspect]
     Active Substance: DEFERASIROX
     Dosage: 19.5 MG/KG, UNK
     Route: 065
     Dates: start: 20171002
  8. FASLODEX [Concomitant]
     Active Substance: FULVESTRANT
     Indication: BREAST CANCER
     Dosage: UNK
     Route: 065
  9. EPOETIN ZETA [Concomitant]
     Active Substance: ERYTHROPOIETIN
     Indication: PRODUCT USED FOR UNKNOWN INDICATION
     Dosage: 40.000 OT, QW
     Route: 058
     Dates: start: 20170227
  10. ZOLEDRONIC ACID [Concomitant]
     Active Substance: ZOLEDRONIC ACID
     Indication: PRODUCT USED FOR UNKNOWN INDICATION
     Dosage: 4 MG, UNK (ALL 3 MONTHS)
     Route: 042
     Dates: start: 20170424

REACTIONS (10)
  - Jaundice [Fatal]
  - Breast cancer [Fatal]
  - Metastases to liver [Fatal]
  - Decreased appetite [Recovered/Resolved]
  - General physical health deterioration [Fatal]
  - Blood bilirubin increased [Fatal]
  - Blood creatinine increased [Recovered/Resolved]
  - Rhinitis [Unknown]
  - Nausea [Recovered/Resolved]
  - Nasopharyngitis [Unknown]

NARRATIVE: CASE EVENT DATE: 20170301
